FAERS Safety Report 23518236 (Version 1)
Quarter: 2024Q1

REPORT INFORMATION
  Report Type: Spontaneous
  Country: US (occurrence: None)
  Receive Date: 20240213
  Receipt Date: 20240213
  Transmission Date: 20240410
  Serious: Yes (Disabling, Other)
  Sender: FDA-Public Use
  Company Number: None

PATIENT
  Age: 68 Year
  Sex: Male
  Weight: 101.25 kg

DRUGS (15)
  1. HYDROCODONE [Suspect]
     Active Substance: HYDROCODONE
     Indication: Spinal disorder
     Route: 048
  2. HYDROCODONE [Suspect]
     Active Substance: HYDROCODONE
     Indication: Multiple injuries
  3. HYDROCODONE [Suspect]
     Active Substance: HYDROCODONE
     Indication: Rheumatoid arthritis
  4. ACTEMRA [Concomitant]
     Active Substance: TOCILIZUMAB
  5. HYDROCODONE [Concomitant]
  6. METHYLPREDNISOLONE [Concomitant]
     Active Substance: METHYLPREDNISOLONE
  7. LEVOCETIRIZINE [Concomitant]
     Active Substance: LEVOCETIRIZINE
  8. FAMOTIDINE [Concomitant]
     Active Substance: FAMOTIDINE
  9. metepolol [Concomitant]
  10. enalaphil [Concomitant]
  11. alodapine [Concomitant]
  12. finastine [Concomitant]
  13. VITAMIN D3 [Concomitant]
     Active Substance: CHOLECALCIFEROL
  14. ASPIRIN [Concomitant]
     Active Substance: ASPIRIN
  15. BIOTIN [Concomitant]
     Active Substance: BIOTIN

REACTIONS (7)
  - Procedural failure [None]
  - Therapeutic product effect incomplete [None]
  - Inadequate analgesia [None]
  - Withdrawal syndrome [None]
  - Headache [None]
  - Fear [None]
  - Depression [None]

NARRATIVE: CASE EVENT DATE: 20240103
